FAERS Safety Report 21066758 (Version 5)
Quarter: 2022Q3

REPORT INFORMATION
  Report Type: Spontaneous
  Country: CA (occurrence: CA)
  Receive Date: 20220712
  Receipt Date: 20220928
  Transmission Date: 20221027
  Serious: Yes (Other)
  Sender: FDA-Public Use
  Company Number: CA-CELLTRION INC.-2022CA010135

PATIENT

DRUGS (10)
  1. INFLECTRA [Suspect]
     Active Substance: INFLIXIMAB-DYYB
     Indication: Colitis ulcerative
     Dosage: 0,2,6 WEEK, THEN EVERY 8 WEEKS
     Route: 042
     Dates: start: 20220608
  2. INFLECTRA [Suspect]
     Active Substance: INFLIXIMAB-DYYB
     Dosage: AT 0, 2 AND 6 WEEKS
     Route: 042
     Dates: start: 20220622
  3. INFLECTRA [Suspect]
     Active Substance: INFLIXIMAB-DYYB
     Dosage: EVERY 8 WEEKS
     Route: 042
     Dates: start: 20220721
  4. INFLECTRA [Suspect]
     Active Substance: INFLIXIMAB-DYYB
     Dosage: 400 MG,EVERY 8 WEEKS
     Route: 042
     Dates: start: 20220913
  5. METHOTREXATE [Concomitant]
     Active Substance: METHOTREXATE
     Dosage: 7.5 MG, WEEKLY
  6. MESALAMINE [Concomitant]
     Active Substance: MESALAMINE
     Dosage: 1.2 G, 4X/DAY, (QID)
  7. MESALAMINE [Concomitant]
     Active Substance: MESALAMINE
     Dosage: 200 MG, QD
     Route: 048
  8. MESALAMINE [Concomitant]
     Active Substance: MESALAMINE
     Dosage: 4.8 G, DAILY
  9. PREDNISONE [Concomitant]
     Active Substance: PREDNISONE
     Dosage: 40 MG, DAILY
     Route: 048
  10. PREDNISONE [Concomitant]
     Active Substance: PREDNISONE
     Dosage: 10 MG, QD
     Route: 048

REACTIONS (7)
  - Rectal haemorrhage [Unknown]
  - Off label use [Unknown]
  - Off label use [Unknown]
  - Intentional product use issue [Unknown]
  - Condition aggravated [Unknown]
  - Loss of personal independence in daily activities [Recovering/Resolving]
  - Weight increased [Unknown]

NARRATIVE: CASE EVENT DATE: 20220101
